FAERS Safety Report 14710845 (Version 4)
Quarter: 2022Q3

REPORT INFORMATION
  Report Type: Spontaneous
  Country: US (occurrence: None)
  Receive Date: 20180403
  Receipt Date: 20220826
  Transmission Date: 20221026
  Serious: Yes (Other)
  Sender: FDA-Public Use
  Company Number: 2018SE39870

PATIENT
  Age: 52 Year
  Sex: Female
  Weight: 115.7 kg

DRUGS (60)
  1. NEXIUM [Suspect]
     Active Substance: ESOMEPRAZOLE MAGNESIUM
     Indication: Gastrooesophageal reflux disease
     Route: 048
     Dates: start: 2005, end: 2016
  2. PRILOSEC [Suspect]
     Active Substance: OMEPRAZOLE MAGNESIUM
     Indication: Gastrooesophageal reflux disease
     Route: 048
  3. PRILOSEC [Suspect]
     Active Substance: OMEPRAZOLE MAGNESIUM
     Indication: Gastrooesophageal reflux disease
     Dosage: GENERIC
     Route: 065
     Dates: start: 2010, end: 2016
  4. PRILOSEC OTC [Suspect]
     Active Substance: OMEPRAZOLE MAGNESIUM
     Indication: Gastrooesophageal reflux disease
     Route: 048
     Dates: start: 2005, end: 2016
  5. PRILOSEC OTC [Suspect]
     Active Substance: OMEPRAZOLE MAGNESIUM
     Indication: Gastrooesophageal reflux disease
     Route: 048
     Dates: start: 2009
  6. PREVACID [Suspect]
     Active Substance: LANSOPRAZOLE
     Indication: Gastrooesophageal reflux disease
     Route: 065
     Dates: start: 2005, end: 2016
  7. PREVACID [Suspect]
     Active Substance: LANSOPRAZOLE
     Indication: Gastrooesophageal reflux disease
     Route: 065
     Dates: start: 2005, end: 2009
  8. NEXIUM 24HR [Suspect]
     Active Substance: ESOMEPRAZOLE MAGNESIUM
     Route: 048
  9. VITAMIN C [Concomitant]
     Active Substance: ASCORBIC ACID
     Indication: Nasopharyngitis
     Dosage: ONLY FOR 1 WEEK
     Route: 065
  10. CINNAMON [Concomitant]
     Active Substance: CINNAMON
     Indication: Blood cholesterol
     Route: 065
     Dates: start: 2014
  11. OMEGA 3 [Concomitant]
     Active Substance: CAPSAICIN
     Indication: Blood cholesterol
     Route: 065
     Dates: start: 2017
  12. DIETARY SUPPLEMENT\HERBALS\MILK THISTLE [Concomitant]
     Active Substance: DIETARY SUPPLEMENT\HERBALS\MILK THISTLE
     Indication: Blood cholesterol
     Route: 065
     Dates: start: 2015, end: 2016
  13. BUPROPION [Concomitant]
     Active Substance: BUPROPION
     Indication: Antidepressant therapy
     Route: 048
     Dates: start: 2010, end: 2011
  14. BUPROPION [Concomitant]
     Active Substance: BUPROPION
     Indication: Antidepressant therapy
     Route: 048
     Dates: start: 2016
  15. LISINOPRIL [Concomitant]
     Active Substance: LISINOPRIL
     Indication: Blood pressure abnormal
     Route: 065
     Dates: start: 2011, end: 2016
  16. HYDROCHLOROTHIAZIDE [Concomitant]
     Active Substance: HYDROCHLOROTHIAZIDE
     Indication: Blood pressure abnormal
     Route: 048
     Dates: start: 2005, end: 2016
  17. DICLOFENAC [Concomitant]
     Active Substance: DICLOFENAC
     Indication: Antiinflammatory therapy
     Route: 065
     Dates: start: 2014, end: 2016
  18. LORATADINE [Concomitant]
     Active Substance: LORATADINE
     Indication: Hypersensitivity
     Route: 048
     Dates: start: 2012, end: 2016
  19. RANITIDINE [Concomitant]
     Active Substance: RANITIDINE
     Indication: Gastrooesophageal reflux disease
     Route: 065
     Dates: start: 2016
  20. PROAIR HFA [Concomitant]
     Active Substance: ALBUTEROL SULFATE
     Indication: Asthma
     Route: 065
     Dates: start: 2014
  21. TRAMADOL [Concomitant]
     Active Substance: TRAMADOL
     Indication: Pain
     Route: 048
     Dates: start: 2011, end: 2012
  22. FUROSEMIDE [Concomitant]
     Active Substance: FUROSEMIDE
     Indication: Fluid retention
     Route: 065
     Dates: start: 2013, end: 2014
  23. FERROUS SULFATE [Concomitant]
     Active Substance: FERROUS SULFATE
     Route: 065
  24. PROCARDIA [Concomitant]
     Active Substance: NIFEDIPINE
     Route: 065
  25. AMBROXOL/SULFAMETHOXAZOLE/TRIMETHOPRIM [Concomitant]
     Route: 065
  26. METRONIDAZOLE [Concomitant]
     Active Substance: METRONIDAZOLE
     Route: 065
  27. AMOXICILLIN [Concomitant]
     Active Substance: AMOXICILLIN
     Route: 048
  28. CIPROFLOXACIN HYDROCHLORIDE [Concomitant]
     Active Substance: CIPROFLOXACIN HYDROCHLORIDE
     Route: 065
  29. IBUPROFEN [Concomitant]
     Active Substance: IBUPROFEN
     Route: 065
  30. LOVASTATIN [Concomitant]
     Active Substance: LOVASTATIN
     Route: 065
  31. VITAMINS [Concomitant]
     Active Substance: VITAMINS
     Route: 065
  32. ACETYLSALICYLIC ACID ALUMINIUM/CHLORPHENAMINE MALEATE/RIBOFLAVIN/CAFFE [Concomitant]
     Route: 065
  33. BISACODYL [Concomitant]
     Active Substance: BISACODYL
     Dosage: AS DIRECTED
     Route: 048
  34. AZITHROMYCIN [Concomitant]
     Active Substance: AZITHROMYCIN
     Route: 048
  35. PREDNISONE [Concomitant]
     Active Substance: PREDNISONE
     Route: 048
  36. HERBALS\TURMERIC [Concomitant]
     Active Substance: HERBALS\TURMERIC
  37. LIPITOR [Concomitant]
     Active Substance: ATORVASTATIN CALCIUM
  38. ALLOPURINOL [Concomitant]
     Active Substance: ALLOPURINOL
  39. CICLOPIROX [Concomitant]
     Active Substance: CICLOPIROX
  40. EZETIMIBE [Concomitant]
     Active Substance: EZETIMIBE
  41. TERBINAFINE [Concomitant]
     Active Substance: TERBINAFINE
  42. FLUTICASONE [Concomitant]
     Active Substance: FLUTICASONE
  43. VENLAFAXINE [Concomitant]
     Active Substance: VENLAFAXINE HYDROCHLORIDE
  44. CEPHALEXIN [Concomitant]
     Active Substance: CEPHALEXIN
  45. DIAZEPAM [Concomitant]
     Active Substance: DIAZEPAM
  46. EPINEPHRINE [Concomitant]
     Active Substance: EPINEPHRINE
  47. NEOMYCIN/BENZOCAINE/FLUOCINOLONE ACETONIDE/RUSCOGENIN [Concomitant]
  48. MONTELUKAST [Concomitant]
     Active Substance: MONTELUKAST SODIUM
  49. TRIAMCINOLONE [Concomitant]
     Active Substance: TRIAMCINOLONE
  50. GUAIFENESIN [Concomitant]
     Active Substance: GUAIFENESIN
  51. CLINDAMYCIN [Concomitant]
     Active Substance: CLINDAMYCIN
  52. BENADRYL [Concomitant]
     Active Substance: DIPHENHYDRAMINE HYDROCHLORIDE
  53. PREDNISOLONE [Concomitant]
     Active Substance: PREDNISOLONE
  54. OFLOXACIN [Concomitant]
     Active Substance: OFLOXACIN
  55. VOLTAREN [Concomitant]
     Active Substance: DICLOFENAC SODIUM
  56. ALBUTEROL [Concomitant]
     Active Substance: ALBUTEROL
  57. ZITHROMAX [Concomitant]
     Active Substance: AZITHROMYCIN DIHYDRATE
  58. VENTOLIN [Concomitant]
     Active Substance: ALBUTEROL SULFATE
  59. TOBRAMYCIN [Concomitant]
     Active Substance: TOBRAMYCIN
  60. KETOCONAZOLE [Concomitant]
     Active Substance: KETOCONAZOLE

REACTIONS (3)
  - Acute kidney injury [Not Recovered/Not Resolved]
  - Chronic kidney disease [Not Recovered/Not Resolved]
  - Renal failure [Unknown]

NARRATIVE: CASE EVENT DATE: 20150101
